FAERS Safety Report 10192982 (Version 1)
Quarter: 2014Q2

REPORT INFORMATION
  Report Type: Spontaneous
  Country: US (occurrence: US)
  Receive Date: 20140524
  Receipt Date: 20140524
  Transmission Date: 20141212
  Serious: Yes (Death)
  Sender: FDA-Public Use
  Company Number: US-ROCHE-1407481

PATIENT
  Age: 82 Year
  Sex: Male

DRUGS (7)
  1. XELODA [Suspect]
     Indication: COLON CANCER
     Route: 048
     Dates: start: 20131122
  2. CELEXA (UNITED STATES) [Concomitant]
  3. ALBUTEROL [Concomitant]
  4. HYDROCHLOROTHIAZIDE [Concomitant]
  5. OMEPRAZOLE [Concomitant]
  6. WARFARIN [Concomitant]
  7. AMLODIPINE BESYLATE [Concomitant]

REACTIONS (1)
  - Death [Fatal]
